FAERS Safety Report 11988045 (Version 2)
Quarter: 2016Q1

REPORT INFORMATION
  Report Type: Spontaneous
  Country: NO (occurrence: NO)
  Receive Date: 20160202
  Receipt Date: 20160210
  Transmission Date: 20160526
  Serious: Yes (Other)
  Sender: FDA-Public Use
  Company Number: NO-BRISTOL-MYERS SQUIBB COMPANY-16938094

PATIENT
  Sex: Female

DRUGS (2)
  1. KLEXANE [Suspect]
     Active Substance: ENOXAPARIN
     Indication: PRODUCT USED FOR UNKNOWN INDICATION
     Dosage: 40 MG, UNK
     Route: 065
     Dates: start: 201207, end: 20120722
  2. ELIQUIS [Suspect]
     Active Substance: APIXABAN
     Indication: THROMBOSIS PROPHYLAXIS
     Dosage: 2.5MGX2
     Route: 065
     Dates: start: 20120723

REACTIONS (2)
  - Off label use [Unknown]
  - Pulmonary embolism [Unknown]

NARRATIVE: CASE EVENT DATE: 20120724
